FAERS Safety Report 16724030 (Version 2)
Quarter: 2019Q3

REPORT INFORMATION
  Report Type: Spontaneous
  Country: BR (occurrence: BR)
  Receive Date: 20190821
  Receipt Date: 20190919
  Transmission Date: 20191005
  Serious: Yes (Hospitalization, Other)
  Sender: FDA-Public Use
  Company Number: BR-ROCHE-2344245

PATIENT
  Sex: Male
  Weight: 86 kg

DRUGS (3)
  1. ALECENSA [Suspect]
     Active Substance: ALECTINIB HYDROCHLORIDE
     Route: 048
  2. ALECENSA [Suspect]
     Active Substance: ALECTINIB HYDROCHLORIDE
     Indication: LUNG NEOPLASM MALIGNANT
     Route: 048
     Dates: start: 20190415
  3. PREDSIM [Concomitant]
     Active Substance: PREDNISOLONE

REACTIONS (5)
  - Pneumonitis [Recovering/Resolving]
  - Gastrooesophageal reflux disease [Unknown]
  - Interstitial lung disease [Recovered/Resolved]
  - Pleural effusion [Recovered/Resolved]
  - Pneumonia [Unknown]
